FAERS Safety Report 7306265-0 (Version None)
Quarter: 2011Q1

REPORT INFORMATION
  Report Type: 
  Country: None (occurrence: None)
  Receive Date: 20110222
  Receipt Date: 20110208
  Transmission Date: 20110831
  Serious: Yes (Other)
  Sender: FDA-Public Use
  Company Number: PHHY2011JP10369

PATIENT
  Age: 72 Year
  Sex: Female
  Weight: 56 kg

DRUGS (4)
  1. TECELEUKIN [Concomitant]
     Indication: METASTATIC RENAL CELL CARCINOMA
     Dosage: UNK
     Dates: start: 20090622, end: 20100514
  2. CELECOXIB [Suspect]
     Dosage: 200 MG, DAILY
     Route: 048
     Dates: start: 20110107
  3. SORAFENIB TOSILATE [Concomitant]
     Indication: METASTATIC RENAL CELL CARCINOMA
     Dosage: 800 MG, UNK
     Route: 048
     Dates: start: 20100521, end: 20110103
  4. AFINITOR [Suspect]
     Indication: RENAL CELL CARCINOMA
     Dosage: 10 MG, DAILY
     Route: 048
     Dates: start: 20110107

REACTIONS (2)
  - NEOPLASM MALIGNANT [None]
  - SKIN DISORDER [None]
